FAERS Safety Report 12930432 (Version 1)
Quarter: 2016Q4

REPORT INFORMATION
  Report Type: Spontaneous
  Country: US (occurrence: US)
  Receive Date: 20161111
  Receipt Date: 20161111
  Transmission Date: 20170207
  Serious: No
  Sender: FDA-Public Use
  Company Number: None

PATIENT

DRUGS (1)
  1. SUMATRIPTAN. [Suspect]
     Active Substance: SUMATRIPTAN
     Route: 048

REACTIONS (4)
  - Inappropriate schedule of drug administration [None]
  - Cardiac disorder [None]
  - Incorrect drug administration duration [None]
  - Overdose [None]
